FAERS Safety Report 5931118-X (Version None)
Quarter: 2008Q4

REPORT INFORMATION
  Report Type: 
  Country: None (occurrence: None)
  Receive Date: 20081027
  Receipt Date: 20081016
  Transmission Date: 20090506
  Serious: Yes (Other)
  Sender: FDA-Public Use
  Company Number: PHHY2008BR25036

PATIENT
  Sex: Male
  Weight: 84 kg

DRUGS (3)
  1. DIOVAN [Suspect]
     Indication: BLOOD PRESSURE DECREASED
     Dosage: 1 TABLET PER DAY
     Route: 048
     Dates: start: 20060101
  2. ATENOLOL [Concomitant]
     Indication: BLOOD PRESSURE INCREASED
     Dosage: 1 TABLET PER DAY
     Route: 048
  3. ATACAND [Concomitant]

REACTIONS (4)
  - ANXIETY [None]
  - BLOOD PRESSURE INCREASED [None]
  - FEAR [None]
  - PANIC DISORDER [None]
